FAERS Safety Report 20699890 (Version 1)
Quarter: 2022Q2

REPORT INFORMATION
  Report Type: Spontaneous
  Country: US (occurrence: None)
  Receive Date: 20220409
  Receipt Date: 20220409
  Transmission Date: 20220721
  Serious: Yes (Life-Threatening, Disabling)
  Sender: FDA-Public Use
  Company Number: None

PATIENT
  Age: 30 Year
  Sex: Female
  Weight: 67.5 kg

DRUGS (1)
  1. KLONOPIN [Suspect]
     Active Substance: CLONAZEPAM
     Indication: Anxiety
     Route: 048
     Dates: start: 20201001, end: 20211116

REACTIONS (20)
  - Seizure [None]
  - Insomnia [None]
  - Suicidal ideation [None]
  - Akathisia [None]
  - Anxiety [None]
  - Panic attack [None]
  - Crying [None]
  - Vomiting [None]
  - Gastrointestinal disorder [None]
  - Depersonalisation/derealisation disorder [None]
  - Intrusive thoughts [None]
  - Fear [None]
  - Hypersensitivity [None]
  - Tachycardia [None]
  - Feeling abnormal [None]
  - Headache [None]
  - Merycism [None]
  - Withdrawal syndrome [None]
  - Derealisation [None]
  - Seizure [None]

NARRATIVE: CASE EVENT DATE: 20210401
